FAERS Safety Report 7261321-0 (Version None)
Quarter: 2011Q1

REPORT INFORMATION
  Report Type: 
  Country: None (occurrence: None)
  Receive Date: 20110130
  Receipt Date: 20101021
  Transmission Date: 20110831
  Serious: No
  Sender: FDA-Public Use
  Company Number: US-ABBOTT-10P-163-0680040-00

PATIENT
  Age: 67 Year
  Sex: Female

DRUGS (10)
  1. ESTRADIOL [Concomitant]
     Indication: PRODUCT USED FOR UNKNOWN INDICATION
  2. FENOFIBRATE [Concomitant]
     Indication: BLOOD CHOLESTEROL
  3. GLIMEPIRIDE [Concomitant]
     Indication: DIABETES MELLITUS
  4. MULTI-VITAMIN [Concomitant]
     Indication: PRODUCT USED FOR UNKNOWN INDICATION
  5. HUMIRA [Suspect]
     Indication: PSORIASIS
     Dates: start: 20100701, end: 20101015
  6. ASPIRIN [Concomitant]
     Indication: PRODUCT USED FOR UNKNOWN INDICATION
  7. LISINOPRIL [Concomitant]
     Indication: HYPERTENSION
  8. SIMVASTATIN [Concomitant]
     Indication: BLOOD CHOLESTEROL
  9. METFORMIN [Concomitant]
     Indication: DIABETES MELLITUS
  10. HYDROCHLOROTHIAZIDE [Concomitant]
     Indication: HYPERTENSION

REACTIONS (5)
  - CONTUSION [None]
  - FUNGAL INFECTION [None]
  - BLISTER [None]
  - PAIN [None]
  - SKIN EXFOLIATION [None]
